FAERS Safety Report 10370289 (Version 1)
Quarter: 2014Q3

REPORT INFORMATION
  Report Type: Spontaneous
  Country: US (occurrence: None)
  Receive Date: 20140805
  Receipt Date: 20140805
  Transmission Date: 20150326
  Serious: Yes (Hospitalization)
  Sender: FDA-Public Use
  Company Number: 2014SGN00914

PATIENT
  Age: 71 Year
  Sex: Female
  Weight: 64.7 kg

DRUGS (10)
  1. BRENTUXIMAB VEDOTIN (BRENTUXIMAB VEDOTIN) INJECTION [Suspect]
     Active Substance: BRENTUXIMAB VEDOTIN
     Indication: DIFFUSE LARGE B-CELL LYMPHOMA
     Dosage: 1.2 MG/KG Q21D, INTRAVENOUS
     Route: 042
     Dates: start: 20140404, end: 20140604
  2. CRESTOR [Concomitant]
     Active Substance: ROSUVASTATIN CALCIUM
  3. TRAMADOL (TRAMADOL) [Concomitant]
     Active Substance: TRAMADOL
  4. RITUXIMAB [Suspect]
     Active Substance: RITUXIMAB
     Indication: DIFFUSE LARGE B-CELL LYMPHOMA
     Dosage: 375MG/M2 Q21D, INTRAVENOUS
     Route: 042
     Dates: start: 20140404
  5. VINCRISTINE (VINCRISTINE) INJECTION [Suspect]
     Active Substance: VINCRISTINE
     Indication: DIFFUSE LARGE B-CELL LYMPHOMA
     Dosage: 1.4 MG/M2 Q21D INTRAVENOUS
     Route: 042
     Dates: start: 20140404, end: 20140604
  6. DOXORUBICIN (DOXORUBICIN) INJECTION [Suspect]
     Active Substance: DOXORUBICIN
     Indication: DIFFUSE LARGE B-CELL LYMPHOMA
     Dosage: 50MG/M2, Q21D, INTRAVENOUS
     Route: 042
     Dates: start: 20140404, end: 20140604
  7. TYLENOL [Concomitant]
     Active Substance: ACETAMINOPHEN
  8. CYCLOPHOSPHAMIDE. [Suspect]
     Active Substance: CYCLOPHOSPHAMIDE
     Indication: DIFFUSE LARGE B-CELL LYMPHOMA
     Dosage: 750 MG/M2, Q21D, INTRAVENOUS
     Route: 042
     Dates: start: 20140404, end: 20140604
  9. NEULASTA [Concomitant]
     Active Substance: PEGFILGRASTIM
  10. PREDNISONE. [Suspect]
     Active Substance: PREDNISONE
     Indication: DIFFUSE LARGE B-CELL LYMPHOMA
     Dosage: 500MG, QCYCLE, ORAL
     Route: 048
     Dates: start: 20140404, end: 20140604

REACTIONS (6)
  - Neutrophil count decreased [None]
  - Platelet count decreased [None]
  - Pyrexia [None]
  - Vomiting [None]
  - Fatigue [None]
  - White blood cell count decreased [None]

NARRATIVE: CASE EVENT DATE: 20140612
